FAERS Safety Report 6783434-X (Version None)
Quarter: 2010Q2

REPORT INFORMATION
  Report Type: 
  Country: None (occurrence: None)
  Receive Date: 20100622
  Receipt Date: 20100611
  Transmission Date: 20101027
  Serious: Yes (Other)
  Sender: FDA-Public Use
  Company Number: FI-PFIZER INC-2010073227

PATIENT
  Age: 71 Year
  Sex: Female

DRUGS (5)
  1. SALAZOPYRIN [Suspect]
     Indication: RHEUMATOID ARTHRITIS
     Dosage: 4 TABLETS DAILY
     Route: 048
     Dates: start: 20100501, end: 20100601
  2. ARCOXIA [Concomitant]
     Indication: PAIN
  3. ARCOXIA [Concomitant]
     Indication: RHEUMATOID ARTHRITIS
  4. THYROXIN [Concomitant]
     Indication: HYPOTHYROIDISM
  5. SOMAC [Concomitant]
     Indication: PROPHYLAXIS AGAINST GASTROINTESTINAL ULCER

REACTIONS (2)
  - AGEUSIA [None]
  - ANOSMIA [None]
